FAERS Safety Report 8007804-7 (Version None)
Quarter: 2011Q4

REPORT INFORMATION
  Report Type: 
  Country: None (occurrence: None)
  Receive Date: 20111227
  Receipt Date: 20110527
  Transmission Date: 20120403
  Serious: No
  Sender: FDA-Public Use
  Company Number: US-ABBOTT-11P-163-0729015-00

PATIENT
  Sex: Male
  Weight: 81.72 kg

DRUGS (4)
  1. SOMATULINE DEPOT [Suspect]
     Indication: ACROMEGALY
     Route: 058
     Dates: start: 20101201
  2. LUPRON DEPOT [Suspect]
     Indication: PROSTATE CANCER
  3. CALCIUM ACETATE [Concomitant]
     Indication: MINERAL SUPPLEMENTATION
     Route: 048
  4. ANTI-DEPRESSANT [Concomitant]
     Indication: PRODUCT USED FOR UNKNOWN INDICATION
     Dosage: EVERY EVENING
     Route: 048

REACTIONS (4)
  - DIARRHOEA [None]
  - MOBILITY DECREASED [None]
  - HEART RATE DECREASED [None]
  - CONSTIPATION [None]
